FAERS Safety Report 21700836 (Version 1)
Quarter: 2022Q4

REPORT INFORMATION
  Report Type: Spontaneous
  Country: US (occurrence: US)
  Receive Date: 20221208
  Receipt Date: 20221208
  Transmission Date: 20230112
  Serious: No
  Sender: FDA-Public Use
  Company Number: US-JNJFOC-20221210981

PATIENT
  Age: 10 Year
  Sex: Male

DRUGS (4)
  1. RISPERDAL [Suspect]
     Active Substance: RISPERIDONE
     Indication: Tic
     Dosage: 1ST WEEK 0.5 MG, 2ND WEEK 0.5 MG BID, 3RD WEEK 0.5 AND 1 MG, AND A 4TH WEEK DOSE OF 1 MG BID
     Route: 048
     Dates: start: 20030221
  2. RISPERDAL [Suspect]
     Active Substance: RISPERIDONE
     Dosage: RISPERIDONE DOSE INCREASED TO 0.5 AND 1 MG
     Route: 048
     Dates: start: 20030305
  3. RISPERDAL [Suspect]
     Active Substance: RISPERIDONE
     Dosage: DECREASE TO 4 MG TO 3 MG (1 MG IN THE MORNING, AND 2 MG BED TIME (TOTAL OF 3 MG PER DAY)
     Route: 048
     Dates: start: 20030813
  4. RISPERDAL [Suspect]
     Active Substance: RISPERIDONE
     Dosage: 3 MG, TWICE DAILY
     Route: 048

REACTIONS (2)
  - Abnormal weight gain [Unknown]
  - Off label use [Unknown]

NARRATIVE: CASE EVENT DATE: 20030101
